FAERS Safety Report 8896435 (Version 1)
Quarter: 2012Q4

REPORT INFORMATION
  Report Type: Spontaneous
  Country: KR (occurrence: None)
  Receive Date: 20121105
  Receipt Date: 20121105
  Transmission Date: 20130627
  Serious: Yes (Other)
  Sender: FDA-Public Use
  Company Number: DSA_60429_2012

PATIENT
  Age: 83 Year
  Sex: Male

DRUGS (1)
  1. FLUOROURACIL (FLUOROURACIL) [Suspect]
     Indication: COLON CANCER
     Dosage: (DF)

REACTIONS (2)
  - Arteriospasm coronary [None]
  - Arteriosclerosis coronary artery [None]
